FAERS Safety Report 10786763 (Version 1)
Quarter: 2015Q1

REPORT INFORMATION
  Report Type: Spontaneous
  Country: SE (occurrence: SE)
  Receive Date: 20150211
  Receipt Date: 20150211
  Transmission Date: 20150721
  Serious: Yes (Death)
  Sender: FDA-Public Use
  Company Number: SE-BIOGENIDEC-2015BI013781

PATIENT
  Sex: Male

DRUGS (8)
  1. RAMIPRIL. [Concomitant]
     Active Substance: RAMIPRIL
     Route: 048
  2. MULTAQ [Concomitant]
     Active Substance: DRONEDARONE
     Route: 048
  3. MODIODAL [Concomitant]
     Active Substance: MODAFINIL
     Route: 048
  4. WARAN [Concomitant]
     Active Substance: WARFARIN SODIUM
  5. FOLACIN [Concomitant]
     Active Substance: FOLIC ACID
     Route: 048
  6. TYSABRI [Suspect]
     Active Substance: NATALIZUMAB
     Indication: MULTIPLE SCLEROSIS
     Route: 042
     Dates: start: 20070917, end: 20140925
  7. BEHEPAN [Concomitant]
     Active Substance: HYDROXOCOBALAMIN
     Route: 048
  8. BISOPROLOL [Concomitant]
     Active Substance: BISOPROLOL
     Route: 048

REACTIONS (1)
  - Cardiovascular disorder [Fatal]
